FAERS Safety Report 17988121 (Version 1)
Quarter: 2020Q3

REPORT INFORMATION
  Report Type: Spontaneous
  Country: US (occurrence: US)
  Receive Date: 20200706
  Receipt Date: 20200706
  Transmission Date: 20201103
  Serious: No
  Sender: FDA-Public Use
  Company Number: None

PATIENT
  Age: 28 Year
  Sex: Female

DRUGS (1)
  1. TACROLIMUS CAP 1MG [Suspect]
     Active Substance: TACROLIMUS
     Route: 048

REACTIONS (3)
  - Pleurisy [None]
  - Infective pulmonary exacerbation of cystic fibrosis [None]
  - Pneumonia [None]

NARRATIVE: CASE EVENT DATE: 20200505
